FAERS Safety Report 26136688 (Version 1)
Quarter: 2025Q4

REPORT INFORMATION
  Report Type: Spontaneous
  Country: EU (occurrence: EU)
  Receive Date: 20251209
  Receipt Date: 20251209
  Transmission Date: 20260118
  Serious: Yes (Other)
  Sender: Karo Pharma
  Company Number: EU-Karo Pharma-2190216

PATIENT
  Age: 43 Year
  Sex: Female

DRUGS (3)
  1. LAMISIL [Suspect]
     Active Substance: TERBINAFINE HYDROCHLORIDE
     Indication: Onychomycosis
  2. PREDNISOLONE [Concomitant]
     Active Substance: PREDNISOLONE
  3. Methylprednisolone aceponate emulsion [Concomitant]

REACTIONS (1)
  - Subacute cutaneous lupus erythematosus [Recovered/Resolved]
